FAERS Safety Report 13857753 (Version 1)
Quarter: 2017Q3

REPORT INFORMATION
  Report Type: Spontaneous
  Country: AU (occurrence: AU)
  Receive Date: 20170811
  Receipt Date: 20170811
  Transmission Date: 20171127
  Serious: Yes (Other)
  Sender: FDA-Public Use
  Company Number: PHHY2017AU117178

PATIENT
  Sex: Male

DRUGS (20)
  1. FLUDARABINE [Suspect]
     Active Substance: FLUDARABINE PHOSPHATE
     Indication: MYELODYSPLASTIC SYNDROME
  2. METHOTREXATE. [Suspect]
     Active Substance: METHOTREXATE
     Indication: IMMUNOSUPPRESSION
  3. PREDNISOLONE. [Suspect]
     Active Substance: PREDNISOLONE
     Indication: IMMUNOSUPPRESSION
  4. LAMIVUDINE. [Suspect]
     Active Substance: LAMIVUDINE
     Indication: HIV INFECTION
     Route: 065
  5. MELPHALAN. [Suspect]
     Active Substance: MELPHALAN
     Indication: ACUTE MYELOID LEUKAEMIA
     Dosage: UNK
     Route: 065
     Dates: start: 201105
  6. TENOFOVIR [Concomitant]
     Active Substance: TENOFOVIR
     Indication: PRODUCT USED FOR UNKNOWN INDICATION
     Route: 065
  7. FLUDARABINE [Suspect]
     Active Substance: FLUDARABINE PHOSPHATE
     Indication: ACUTE MYELOID LEUKAEMIA
     Dosage: UNK
     Route: 065
     Dates: start: 201004
  8. METHOTREXATE. [Suspect]
     Active Substance: METHOTREXATE
     Indication: MYELODYSPLASTIC SYNDROME
  9. PREDNISOLONE. [Suspect]
     Active Substance: PREDNISOLONE
     Indication: ACUTE MYELOID LEUKAEMIA
     Dosage: UNK
     Route: 065
     Dates: start: 201105
  10. ZIDOVUDINE. [Suspect]
     Active Substance: ZIDOVUDINE
     Indication: HIV INFECTION
     Route: 065
  11. LOPINAVIR [Suspect]
     Active Substance: LOPINAVIR
     Indication: HIV INFECTION
     Route: 065
  12. EMTRICITABINE [Concomitant]
     Active Substance: EMTRICITABINE
     Indication: PRODUCT USED FOR UNKNOWN INDICATION
     Route: 065
  13. METHOTREXATE. [Suspect]
     Active Substance: METHOTREXATE
     Indication: ACUTE MYELOID LEUKAEMIA
     Dosage: UNK
     Route: 065
     Dates: start: 201105
  14. CICLOSPORIN [Suspect]
     Active Substance: CYCLOSPORINE
     Indication: MYELODYSPLASTIC SYNDROME
  15. RALTEGRAVIR. [Concomitant]
     Active Substance: RALTEGRAVIR
     Indication: PRODUCT USED FOR UNKNOWN INDICATION
     Route: 065
  16. CICLOSPORIN [Suspect]
     Active Substance: CYCLOSPORINE
     Indication: ACUTE MYELOID LEUKAEMIA
     Dosage: UNK
     Route: 065
     Dates: start: 201105
  17. CICLOSPORIN [Suspect]
     Active Substance: CYCLOSPORINE
     Indication: IMMUNOSUPPRESSION
  18. RITONAVIR. [Suspect]
     Active Substance: RITONAVIR
     Indication: HIV INFECTION
     Route: 065
  19. PREDNISOLONE. [Suspect]
     Active Substance: PREDNISOLONE
     Indication: MYELODYSPLASTIC SYNDROME
  20. MELPHALAN. [Suspect]
     Active Substance: MELPHALAN
     Indication: MYELODYSPLASTIC SYNDROME

REACTIONS (1)
  - Graft versus host disease [Unknown]
